FAERS Safety Report 12394519 (Version 1)
Quarter: 2016Q2

REPORT INFORMATION
  Report Type: Spontaneous
  Country: US (occurrence: US)
  Receive Date: 20160523
  Receipt Date: 20160523
  Transmission Date: 20160815
  Serious: No
  Sender: FDA-Public Use
  Company Number: US-PFIZER INC-2016261090

PATIENT
  Age: 79 Year
  Sex: Female
  Weight: 70 kg

DRUGS (7)
  1. AZELASTINE HCL [Concomitant]
     Active Substance: AZELASTINE HYDROCHLORIDE
     Dosage: 137 UG, 1 SPRAY AS DIRECTED
     Route: 045
  2. CELEBREX [Concomitant]
     Active Substance: CELECOXIB
     Dosage: 200 MG, EVERY OTHER DAY
     Route: 048
  3. HYDROCHLOROTHIAZIDE. [Concomitant]
     Active Substance: HYDROCHLOROTHIAZIDE
     Dosage: 12.5 MG, EVERY OTHER DAY
     Route: 048
  4. LISINOPRIL. [Concomitant]
     Active Substance: LISINOPRIL
     Dosage: 5 MG, DAILY
     Route: 048
  5. FISH OIL [Concomitant]
     Active Substance: FISH OIL
     Dosage: 500 MG, DAILY
     Route: 048
  6. LIPITOR [Concomitant]
     Active Substance: ATORVASTATIN CALCIUM
     Dosage: 10 MG, DAILY
     Route: 048
  7. IBRANCE [Suspect]
     Active Substance: PALBOCICLIB
     Indication: BREAST CANCER FEMALE
     Dosage: 125 MG, UNK (AS DIRECTED)
     Route: 048

REACTIONS (2)
  - Breast cancer female [Unknown]
  - Disease progression [Unknown]
